FAERS Safety Report 15987465 (Version 2)
Quarter: 2019Q1

REPORT INFORMATION
  Report Type: Spontaneous
  Country: SK (occurrence: SK)
  Receive Date: 20190220
  Receipt Date: 20190227
  Transmission Date: 20190418
  Serious: Yes (Other)
  Sender: FDA-Public Use
  Company Number: SK-ABBVIE-19P-260-2667846-00

PATIENT
  Age: 57 Year
  Sex: Male
  Weight: 115 kg

DRUGS (3)
  1. ADALIMUMAB [Suspect]
     Active Substance: ADALIMUMAB
     Indication: HIDRADENITIS
     Route: 058
  2. INFLIXIMAB [Suspect]
     Active Substance: INFLIXIMAB
     Indication: HIDRADENITIS
     Route: 065
  3. PREDNISOLON [Concomitant]
     Active Substance: PREDNISOLONE
     Indication: HIDRADENITIS
     Route: 065

REACTIONS (4)
  - Hypersensitivity vasculitis [Recovering/Resolving]
  - Product use in unapproved indication [Unknown]
  - Ulcer [Recovering/Resolving]
  - Necrosis [Recovering/Resolving]
